FAERS Safety Report 7874538-9 (Version None)
Quarter: 2011Q4

REPORT INFORMATION
  Report Type: 
  Country: None (occurrence: None)
  Receive Date: 20111030
  Receipt Date: 20111025
  Transmission Date: 20120403
  Serious: Yes (Hospitalization)
  Sender: FDA-Public Use
  Company Number: US-SANOFI-AVENTIS-2011SA070279

PATIENT
  Age: 48 Year
  Sex: Female

DRUGS (6)
  1. ASPIRIN [Concomitant]
  2. THYROID THERAPY [Concomitant]
  3. CRESTOR [Concomitant]
  4. PLAVIX [Suspect]
     Indication: STENT PLACEMENT
     Route: 048
     Dates: start: 20110401, end: 20110725
  5. ALL OTHER THERAPEUTIC PRODUCTS [Concomitant]
  6. PLAVIX [Suspect]
     Indication: ANTIPLATELET THERAPY
     Route: 048
     Dates: start: 20110401, end: 20110725

REACTIONS (4)
  - CHEST PAIN [None]
  - DEVICE OCCLUSION [None]
  - NO THERAPEUTIC RESPONSE [None]
  - GAIT DISTURBANCE [None]
